FAERS Safety Report 4761824-4 (Version None)
Quarter: 2005Q3

REPORT INFORMATION
  Report Type: 
  Country: None (occurrence: None)
  Receive Date: 20050906
  Receipt Date: 20050828
  Transmission Date: 20060218
  Serious: Yes (Death)
  Sender: FDA-Public Use
  Company Number: 200517600GDDC

PATIENT
  Age: 62 Year
  Sex: Female

DRUGS (4)
  1. DOCETAXEL [Suspect]
     Indication: BREAST CANCER
     Route: 042
  2. RADIATION [Suspect]
     Indication: BREAST CANCER
     Dosage: DOSE: 36 GY
  3. HERCEPTIN [Concomitant]
  4. EPIRUBICIN [Concomitant]

REACTIONS (1)
  - RADIATION PNEUMONITIS [None]
